FAERS Safety Report 9438194 (Version 1)
Quarter: 2013Q3

REPORT INFORMATION
  Report Type: Spontaneous
  Country: US (occurrence: US)
  Receive Date: 20130802
  Receipt Date: 20130802
  Transmission Date: 20140515
  Serious: No
  Sender: FDA-Public Use
  Company Number: US-BRISTOL-MYERS SQUIBB COMPANY-17370628

PATIENT
  Age: 67 Year
  Sex: Female

DRUGS (2)
  1. WARFARIN SODIUM [Suspect]
  2. LOVENOX [Suspect]
     Dosage: LAST DOSE:26DEC2012

REACTIONS (1)
  - Hepatic lesion [Unknown]
